FAERS Safety Report 24209960 (Version 1)
Quarter: 2024Q3

REPORT INFORMATION
  Report Type: Spontaneous
  Country: JP (occurrence: JP)
  Receive Date: 20240814
  Receipt Date: 20240814
  Transmission Date: 20241017
  Serious: Yes (Other)
  Sender: ROCHE
  Company Number: JP-CHUGAI-2024027349

PATIENT
  Age: 76 Year
  Sex: Male

DRUGS (3)
  1. TECENTRIQ [Suspect]
     Active Substance: ATEZOLIZUMAB
     Indication: Small cell lung cancer limited stage
     Dosage: UNK
     Route: 042
  2. CARBOPLATIN [Concomitant]
     Active Substance: CARBOPLATIN
     Indication: Small cell lung cancer limited stage
     Dosage: UNK
     Route: 042
  3. ETOPOSIDE [Concomitant]
     Active Substance: ETOPOSIDE
     Indication: Small cell lung cancer limited stage
     Dosage: UNK
     Route: 042

REACTIONS (4)
  - Large intestine perforation [Unknown]
  - Myelosuppression [Unknown]
  - Cytomegalovirus enterocolitis [Unknown]
  - Colitis [Unknown]
